FAERS Safety Report 17617062 (Version 1)
Quarter: 2020Q2

REPORT INFORMATION
  Report Type: Spontaneous
  Country: US (occurrence: US)
  Receive Date: 20200402
  Receipt Date: 20200402
  Transmission Date: 20200713
  Serious: No
  Sender: FDA-Public Use
  Company Number: US-SA-2020SA081123

PATIENT
  Age: 31 Year
  Sex: Female
  Weight: 55.33 kg

DRUGS (4)
  1. XELJANZ [Concomitant]
     Active Substance: TOFACITINIB CITRATE
     Dosage: UNK
  2. DUPIXENT [Suspect]
     Active Substance: DUPILUMAB
     Dosage: 300 MG, QOW
     Route: 058
     Dates: start: 20200106
  3. AQUANIL HC [Concomitant]
     Active Substance: HYDROCORTISONE
     Dosage: UNK
  4. ELIDEL [Concomitant]
     Active Substance: PIMECROLIMUS
     Dosage: UNK

REACTIONS (4)
  - Rash macular [Not Recovered/Not Resolved]
  - Drug ineffective [Not Recovered/Not Resolved]
  - Eczema [Not Recovered/Not Resolved]
  - Rash [Not Recovered/Not Resolved]

NARRATIVE: CASE EVENT DATE: 2020
